FAERS Safety Report 6034754-8 (Version None)
Quarter: 2009Q1

REPORT INFORMATION
  Report Type: 
  Country: None (occurrence: None)
  Receive Date: 20090109
  Receipt Date: 20090109
  Transmission Date: 20090719
  Serious: Yes (Other)
  Sender: FDA-Public Use
  Company Number: None

PATIENT
  Age: 52 Year
  Sex: Female
  Weight: 92.0802 kg

DRUGS (1)
  1. BENADRYL [Suspect]
     Indication: SINUS DISORDER
     Dosage: 1-2 ONCE A DAY AS NEED PO
     Route: 048

REACTIONS (3)
  - MYDRIASIS [None]
  - PAIN IN EXTREMITY [None]
  - PRODUCT QUALITY ISSUE [None]
